FAERS Safety Report 4384396-5 (Version None)
Quarter: 2004Q2

REPORT INFORMATION
  Report Type: 
  Country: None (occurrence: None)
  Receive Date: 20040621
  Receipt Date: 20040607
  Transmission Date: 20050107
  Serious: Yes (Hospitalization)
  Sender: FDA-Public Use
  Company Number: 2004IM000697

PATIENT
  Age: 57 Year
  Sex: Male

DRUGS (2)
  1. INTERFERON ALFACON-1 (INTERFERON ALFACON-1) [Suspect]
     Indication: HEPATITIS C
     Dosage: 9 UG; QD; SUBCUTANEOUS
     Route: 058
     Dates: start: 20040309, end: 20040530
  2. RIBAVIRIN [Concomitant]

REACTIONS (2)
  - INJECTION SITE REACTION [None]
  - PYODERMA GANGRENOSUM [None]
